FAERS Safety Report 9968892 (Version 1)
Quarter: 2014Q1

REPORT INFORMATION
  Report Type: Report from Study
  Country: US (occurrence: US)
  Receive Date: 20140306
  Receipt Date: 20140306
  Transmission Date: 20141002
  Serious: No
  Sender: FDA-Public Use
  Company Number: US-ABBVIE-13P-163-1141921-00

PATIENT
  Age: 59 Year
  Sex: Female

DRUGS (5)
  1. HUMIRA [Suspect]
     Indication: CROHN^S DISEASE
     Dosage: DAY 1
     Dates: start: 20130703, end: 20130703
  2. HUMIRA [Suspect]
  3. HUMIRA [Suspect]
     Dates: end: 20130817
  4. HUMIRA [Suspect]
     Dates: start: 20130824
  5. IMURAN [Concomitant]
     Indication: PRODUCT USED FOR UNKNOWN INDICATION
     Dosage: 3 IN AM, 2 IN EVENING

REACTIONS (10)
  - Abdominal pain [Unknown]
  - Intestinal stenosis [Unknown]
  - Abdominal pain [Unknown]
  - Cold sweat [Unknown]
  - Hyperhidrosis [Unknown]
  - Drug ineffective [Not Recovered/Not Resolved]
  - Dizziness [Unknown]
  - Loss of consciousness [Unknown]
  - Vomiting [Unknown]
  - Nausea [Unknown]
